FAERS Safety Report 21488664 (Version 1)
Quarter: 2022Q4

REPORT INFORMATION
  Report Type: Spontaneous
  Country: US (occurrence: US)
  Receive Date: 20221021
  Receipt Date: 20221021
  Transmission Date: 20230113
  Serious: Yes (Other)
  Sender: FDA-Public Use
  Company Number: US-APOTEX-2022AP014253

PATIENT
  Age: 39 Year
  Sex: Male

DRUGS (4)
  1. GEMCITABINE [Suspect]
     Active Substance: GEMCITABINE
     Indication: NUT midline carcinoma
     Dosage: 1500 MILLIGRAM/SQ. METER (DAY 1, 15 OF 28 DAY CYCLE)
     Route: 065
  2. GEMCITABINE [Suspect]
     Active Substance: GEMCITABINE
     Indication: Non-small cell lung cancer
  3. PACLITAXEL [Suspect]
     Active Substance: PACLITAXEL
     Indication: NUT midline carcinoma
     Dosage: 175 MILLIGRAM/SQ. METER (DAY 1, 15 OF 28 DAY CYCLE)
     Route: 065
  4. PACLITAXEL [Suspect]
     Active Substance: PACLITAXEL
     Indication: Non-small cell lung cancer

REACTIONS (3)
  - Neuropathy peripheral [Unknown]
  - Febrile neutropenia [Unknown]
  - Soft tissue infection [Unknown]
